FAERS Safety Report 8889312 (Version 1)
Quarter: 2012Q4

REPORT INFORMATION
  Report Type: Report from Study
  Country: FR (occurrence: FR)
  Receive Date: 20121106
  Receipt Date: 20121106
  Transmission Date: 20130627
  Serious: Yes (Other)
  Sender: FDA-Public Use
  Company Number: FR-UCBSA-070184

PATIENT
  Age: 67 Year
  Sex: Female
  Weight: 57 kg

DRUGS (6)
  1. CIMZIA [Suspect]
     Indication: RHEUMATOID ARTHRITIS
     Route: 058
     Dates: start: 20120730, end: 201209
  2. CORTANCYL [Concomitant]
     Indication: RHEUMATOID ARTHRITIS
     Dosage: DAILY DOSE 10 MG
     Route: 048
     Dates: start: 20120711
  3. METOJECT [Concomitant]
     Indication: RHEUMATOID ARTHRITIS
     Route: 058
     Dates: start: 2012
  4. SPECIAFOLDINE [Concomitant]
     Indication: RHEUMATOID ARTHRITIS
     Route: 048
     Dates: start: 201203
  5. LEVOTHYROX [Concomitant]
     Indication: THYROID DISORDER
     Dosage: DAILY DOSE 75 MCG
     Route: 048
  6. CARTREX [Concomitant]
     Indication: RHEUMATOID ARTHRITIS
     Dosage: DAILY DOSE 100 MICRO GRAM
     Route: 048
     Dates: start: 200905

REACTIONS (1)
  - Pyelonephritis [Recovered/Resolved]
